FAERS Safety Report 7019531-3 (Version None)
Quarter: 2010Q3

REPORT INFORMATION
  Report Type: 
  Country: None (occurrence: None)
  Receive Date: 20100923
  Receipt Date: 20100824
  Transmission Date: 20110219
  Serious: Yes (Hospitalization)
  Sender: FDA-Public Use
  Company Number: 682497

PATIENT
  Age: 14 Year
  Sex: Male

DRUGS (1)
  1. ENDURE 300 CIDA RINSE GEL ANTIMICROBIAL HAND RINSE [Suspect]
     Dosage: 2 OZ BY MOUTH DAILY
     Dates: start: 20100724, end: 20100824

REACTIONS (5)
  - CONDITION AGGRAVATED [None]
  - INTENTIONAL DRUG MISUSE [None]
  - INTENTIONAL SELF-INJURY [None]
  - RETINITIS PIGMENTOSA [None]
  - WRONG TECHNIQUE IN DRUG USAGE PROCESS [None]
